FAERS Safety Report 8187511-0 (Version None)
Quarter: 2012Q1

REPORT INFORMATION
  Report Type: 
  Country: None (occurrence: None)
  Receive Date: 20120217
  Receipt Date: 20110720
  Transmission Date: 20120608
  Serious: Yes (Other)
  Sender: FDA-Public Use
  Company Number: AUR-APL-2011-04363

PATIENT
  Age: 63 Year
  Sex: Female

DRUGS (1)
  1. SIMVASTATIN [Suspect]
     Indication: BLOOD CHOLESTEROL INCREASED
     Dosage: (20 MG), ORAL
     Route: 048
     Dates: start: 20110715

REACTIONS (6)
  - PARAESTHESIA [None]
  - PARAESTHESIA ORAL [None]
  - DYSPNOEA [None]
  - LIP SWELLING [None]
  - EYE SWELLING [None]
  - ABDOMINAL DISTENSION [None]
